FAERS Safety Report 8125566-X (Version None)
Quarter: 2012Q1

REPORT INFORMATION
  Report Type: 
  Country: None (occurrence: None)
  Receive Date: 20120209
  Receipt Date: 20120206
  Transmission Date: 20120608
  Serious: No
  Sender: FDA-Public Use
  Company Number: US-PFIZER INC-2012023936

PATIENT
  Sex: Female
  Weight: 86.168 kg

DRUGS (10)
  1. GABAPENTIN [Concomitant]
     Indication: NEUROPATHY PERIPHERAL
     Dosage: 300 MG, 3X/DAY
  2. SIMVASTATIN [Suspect]
     Dosage: UNK
  3. FUROSEMIDE [Concomitant]
     Indication: HYPERTENSION
     Dosage: 20 MG, 1X/DAY
  4. LEVOTHYROXINE [Concomitant]
     Indication: THYROIDECTOMY
     Dosage: 50 UG, 1X/DAY
  5. LEVOTHYROXINE [Concomitant]
     Indication: THYROID DISORDER
     Dosage: 0.5 MG, 1X/DAY
  6. LIPITOR [Suspect]
     Indication: BLOOD CHOLESTEROL INCREASED
     Dosage: 20 MG, 1X/DAY
     Route: 048
     Dates: start: 20120115, end: 20120131
  7. ATENOLOL [Concomitant]
     Indication: HYPERTENSION
     Dosage: 50 MG, 1X/DAY
  8. ULORIC [Concomitant]
     Indication: GOUT
     Dosage: 40 MG, 1X/DAY
  9. GABAPENTIN [Concomitant]
     Dosage: 300 MG, 2X/DAY
  10. CAPTOPRIL [Concomitant]
     Indication: HYPERTENSION
     Dosage: 50 MG, 2X/DAY

REACTIONS (4)
  - ARTHRALGIA [None]
  - PAIN IN EXTREMITY [None]
  - MYALGIA [None]
  - BLOOD CHOLESTEROL INCREASED [None]
